FAERS Safety Report 23874819 (Version 4)
Quarter: 2024Q2

REPORT INFORMATION
  Report Type: Report from Study
  Country: BR (occurrence: BR)
  Receive Date: 20240520
  Receipt Date: 20240619
  Transmission Date: 20240715
  Serious: Yes (Other)
  Sender: FDA-Public Use
  Company Number: BR-JNJFOC-20240233696

PATIENT
  Age: 28 Year
  Sex: Female
  Weight: 93 kg

DRUGS (2)
  1. SPRAVATO [Suspect]
     Active Substance: ESKETAMINE
     Indication: Depression
  2. SPRAVATO [Suspect]
     Active Substance: ESKETAMINE
     Dosage: 3 DEVICES (84 MG)

REACTIONS (4)
  - Major depression [Unknown]
  - Off label use [Unknown]
  - Drug ineffective [Unknown]
  - Product dose omission issue [Unknown]

NARRATIVE: CASE EVENT DATE: 20240508
